FAERS Safety Report 23570029 (Version 1)
Quarter: 2024Q1

REPORT INFORMATION
  Report Type: Spontaneous
  Country: US (occurrence: None)
  Receive Date: 20240226
  Receipt Date: 20240226
  Transmission Date: 20240409
  Serious: Yes (Hospitalization, Other)
  Sender: FDA-Public Use
  Company Number: None

PATIENT
  Age: 31 Year
  Sex: Female

DRUGS (3)
  1. CLOZAPINE [Suspect]
     Active Substance: CLOZAPINE
     Indication: Therapeutic drug monitoring
  2. CLOZAPINE [Concomitant]
     Active Substance: CLOZAPINE
  3. clozapine oral [Concomitant]

REACTIONS (5)
  - Inappropriate schedule of product discontinuation [None]
  - Drug monitoring procedure not performed [None]
  - Product label confusion [None]
  - Cholinergic syndrome [None]
  - Rebound effect [None]

NARRATIVE: CASE EVENT DATE: 20240224
